FAERS Safety Report 9431108 (Version 1)
Quarter: 2013Q3

REPORT INFORMATION
  Report Type: Spontaneous
  Country: CA (occurrence: CA)
  Receive Date: 20130730
  Receipt Date: 20130730
  Transmission Date: 20140515
  Serious: Yes (Other)
  Sender: FDA-Public Use
  Company Number: CA-TEVA-421792USA

PATIENT
  Sex: Male
  Weight: 64 kg

DRUGS (1)
  1. FINASTERIDE [Suspect]
     Dosage: 5 MILLIGRAM DAILY;
     Route: 065

REACTIONS (5)
  - Drug ineffective [Recovered/Resolved]
  - Gastrointestinal disorder [Recovered/Resolved]
  - Oesophageal spasm [Recovered/Resolved]
  - Product substitution issue [Recovered/Resolved]
  - Urinary retention [Recovered/Resolved]
